FAERS Safety Report 4610455-5 (Version None)
Quarter: 2005Q1

REPORT INFORMATION
  Report Type: 
  Country: None (occurrence: None)
  Receive Date: 20050301
  Receipt Date: 20050110
  Transmission Date: 20050727
  Serious: No
  Sender: FDA-Public Use
  Company Number: WAES 0501USA00828

PATIENT
  Age: 65 Year
  Sex: Male

DRUGS (8)
  1. ZETIA [Suspect]
     Indication: BLOOD CHOLESTEROL INCREASED
     Dosage: 10 MG/DAILY/PO
     Route: 048
     Dates: start: 20040110, end: 20050110
  2. CARDIZEM [Concomitant]
  3. CARDURA [Concomitant]
  4. PLAVIX [Concomitant]
  5. PROSCAR [Concomitant]
  6. TRICOR [Concomitant]
  7. WELCHOL [Concomitant]
  8. ASPIRIN [Concomitant]

REACTIONS (1)
  - DRUG INEFFECTIVE [None]
